FAERS Safety Report 10020934 (Version 1)
Quarter: 2014Q1

REPORT INFORMATION
  Report Type: Report from Study
  Country: US (occurrence: US)
  Receive Date: 20140319
  Receipt Date: 20140319
  Transmission Date: 20141002
  Serious: Yes (Hospitalization, Other)
  Sender: FDA-Public Use
  Company Number: US-BRISTOL-MYERS SQUIBB COMPANY-20417465

PATIENT
  Age: 64 Year
  Sex: Male
  Weight: 85 kg

DRUGS (2)
  1. IPILIMUMAB [Suspect]
     Indication: MALIGNANT MELANOMA
     Dosage: LAST ADMIN:24F14
     Route: 042
     Dates: start: 20140203
  2. INTRON A [Suspect]
     Indication: MALIGNANT MELANOMA
     Dosage: 1DF:348MU. LAST ADMIN:25F14. HELD:13F14 THRU 21F14. RED:24F14 TO 27MU * 2 DOSE
     Route: 042
     Dates: start: 20140203

REACTIONS (5)
  - Tumour pain [Not Recovered/Not Resolved]
  - Dehydration [Not Recovered/Not Resolved]
  - Nausea [Not Recovered/Not Resolved]
  - Retching [Not Recovered/Not Resolved]
  - Fatigue [Not Recovered/Not Resolved]
